FAERS Safety Report 12195568 (Version 2)
Quarter: 2016Q2

REPORT INFORMATION
  Report Type: Spontaneous
  Country: GB (occurrence: GB)
  Receive Date: 20160321
  Receipt Date: 20160408
  Transmission Date: 20160815
  Serious: No
  Sender: FDA-Public Use
  Company Number: GB-JNJFOC-20160318028

PATIENT
  Age: 75 Year
  Sex: Male

DRUGS (5)
  1. AMITRIPTYLIN [Concomitant]
     Active Substance: AMITRIPTYLINE
     Route: 065
     Dates: start: 2005
  2. XARELTO [Suspect]
     Active Substance: RIVAROXABAN
     Indication: EMBOLISM VENOUS
     Route: 048
     Dates: start: 20160306
  3. XARELTO [Suspect]
     Active Substance: RIVAROXABAN
     Indication: DEEP VEIN THROMBOSIS
     Route: 048
     Dates: start: 20160306
  4. LANSOPRAZOLE. [Concomitant]
     Active Substance: LANSOPRAZOLE
     Route: 065
     Dates: start: 2005
  5. XARELTO [Suspect]
     Active Substance: RIVAROXABAN
     Indication: HEART RATE DECREASED
     Route: 048
     Dates: start: 20160306

REACTIONS (4)
  - Dyspepsia [Recovering/Resolving]
  - Product use issue [Unknown]
  - Oesophageal pain [Recovering/Resolving]
  - Gastrointestinal pain [Recovering/Resolving]

NARRATIVE: CASE EVENT DATE: 20160306
